FAERS Safety Report 4730653-X (Version None)
Quarter: 2005Q3

REPORT INFORMATION
  Report Type: 
  Country: None (occurrence: None)
  Receive Date: 20050725
  Receipt Date: 20050302
  Transmission Date: 20060218
  Serious: No
  Sender: FDA-Public Use
  Company Number: USA050392217

PATIENT
  Age: 11 Year
  Sex: Female
  Weight: 66 kg

DRUGS (2)
  1. STRATTERA [Suspect]
     Indication: ATTENTION DEFICIT/HYPERACTIVITY DISORDER
     Dosage: 60 MG/1 DAY
  2. MOTRIN [Concomitant]

REACTIONS (3)
  - DRY SKIN [None]
  - PRODUCTIVE COUGH [None]
  - SINUS DISORDER [None]
